FAERS Safety Report 11212939 (Version 1)
Quarter: 2015Q2

REPORT INFORMATION
  Report Type: Spontaneous
  Country: US (occurrence: US)
  Receive Date: 20150623
  Receipt Date: 20150623
  Transmission Date: 20150821
  Serious: Yes (Hospitalization, Disabling, Other)
  Sender: FDA-Public Use
  Company Number: US-009507513-1204USA00467

PATIENT
  Sex: Female
  Weight: 68.48 kg

DRUGS (8)
  1. RECLAST [Suspect]
     Active Substance: ZOLEDRONIC ACID
     Indication: OSTEOPOROSIS
     Dosage: 5 MG/100CC
     Route: 042
     Dates: start: 20100927
  2. ZOLEDRONIC ACID [Suspect]
     Active Substance: ZOLEDRONIC ACID
     Dates: start: 200702, end: 20111001
  3. POTASSIUM CHLORIDE. [Concomitant]
     Active Substance: POTASSIUM CHLORIDE
     Dosage: UNK
     Dates: start: 201006
  4. VITAMIN D [Concomitant]
     Active Substance: CHOLECALCIFEROL
     Dosage: 2000 IU, QD
     Dates: start: 2010, end: 2011
  5. BONIVA [Suspect]
     Active Substance: IBANDRONATE SODIUM
     Indication: OSTEOPOROSIS
     Dosage: 150 MG, UNK
     Route: 048
     Dates: start: 2007, end: 2009
  6. MAGNESIUM OXIDE. [Concomitant]
     Active Substance: MAGNESIUM OXIDE
     Dosage: 400 MG, BID
     Dates: start: 201007
  7. MK-0000 [Suspect]
     Active Substance: INVESTIGATIONAL PRODUCT
     Route: 048
  8. IBANDRONATE SODIUM. [Suspect]
     Active Substance: IBANDRONATE SODIUM
     Dates: start: 200702, end: 201110

REACTIONS (27)
  - Intramedullary rod insertion [Unknown]
  - Anaemia [Unknown]
  - Breath sounds abnormal [Unknown]
  - Hypocoagulable state [Unknown]
  - Femur fracture [Not Recovered/Not Resolved]
  - Pedal pulse decreased [Unknown]
  - Pain [Not Recovered/Not Resolved]
  - Vitiligo [Unknown]
  - Arteriosclerosis [Unknown]
  - Peripheral venous disease [Unknown]
  - Bone disorder [Not Recovered/Not Resolved]
  - Removal of internal fixation [Unknown]
  - Stress fracture [Not Recovered/Not Resolved]
  - Osteoporosis [Not Recovered/Not Resolved]
  - Hypothyroidism [Unknown]
  - Gastrooesophageal reflux disease [Unknown]
  - Fracture nonunion [Unknown]
  - Undifferentiated connective tissue disease [Unknown]
  - Leukocytosis [Unknown]
  - Arthralgia [Unknown]
  - Osteopenia [Unknown]
  - Bone density decreased [Not Recovered/Not Resolved]
  - Skin hyperpigmentation [Not Recovered/Not Resolved]
  - Hypokalaemia [Unknown]
  - Biopsy bone [Unknown]
  - Cardiac murmur [Unknown]
  - Antiphospholipid antibodies positive [Unknown]

NARRATIVE: CASE EVENT DATE: 2006
